FAERS Safety Report 9339152 (Version 2)
Quarter: 2013Q3

REPORT INFORMATION
  Report Type: Spontaneous
  Country: US (occurrence: None)
  Receive Date: 20130604
  Receipt Date: 20130808
  Transmission Date: 20140515
  Serious: Yes (Other)
  Sender: FDA-Public Use
  Company Number: 2013PROUSA02851

PATIENT
  Age: 79 Year
  Sex: Male
  Weight: 89.3 kg

DRUGS (15)
  1. PROVENGE (SIPULEUCEL-T) SUSPENSION [Suspect]
     Indication: PROSTATE CANCER METASTATIC
     Dosage: 250MG, SINGLE, INTRAVENOUS
     Route: 042
     Dates: start: 20120518, end: 20120518
  2. CARVEDILLOL (CARVEDILLOL) TABLET [Concomitant]
  3. COUMADIN (WARFARIN SODIUM) [Concomitant]
  4. FLOMAX (TAMSULOSIN HYDROCHLORIDE) [Concomitant]
  5. HYDROCHLOROTHIAZIDE (HYDROCHLOROTHIAZIDE) [Concomitant]
  6. LISINOPRIL (LISINOPRIL) [Concomitant]
  7. NILUTAMIDE (NILUTAMIDE) [Concomitant]
  8. PLAVIS (CLOPIDOGREL BISULFATE) [Concomitant]
  9. RANITIDINE (RANITIDINE HYDROCHLORIDE) [Concomitant]
  10. ASPIRIN (ACETYLSALICYLIC ACID) [Concomitant]
  11. CABAZITAXEL (CABAZITAXEL) [Concomitant]
  12. PRADAXA (DABIGATRAN ETEXILATE MESILATE) [Concomitant]
  13. NORVASC (AMLODIPINE BESILATE) [Concomitant]
  14. ELIGARD (LEUPRORELIN ACETATE) [Concomitant]
  15. FAMOTIDINE (FAMOTIDINE) [Concomitant]

REACTIONS (8)
  - Presyncope [None]
  - Cerebrovascular accident [None]
  - Dizziness postural [None]
  - Ventricular extrasystoles [None]
  - Blood urea increased [None]
  - Blood creatinine increased [None]
  - Refusal of treatment by patient [None]
  - Atrial fibrillation [None]
